FAERS Safety Report 24214173 (Version 2)
Quarter: 2024Q3

REPORT INFORMATION
  Report Type: Spontaneous
  Country: US (occurrence: US)
  Receive Date: 20240815
  Receipt Date: 20240829
  Transmission Date: 20241016
  Serious: Yes (Life-Threatening, Hospitalization)
  Sender: TEVA
  Company Number: US-TEVA-VS-3230800

PATIENT
  Age: 7 Year
  Sex: Female

DRUGS (7)
  1. FLUTICASONE [Suspect]
     Active Substance: FLUTICASONE
     Indication: Asthma
     Route: 055
  2. FLUTICASONE [Suspect]
     Active Substance: FLUTICASONE
  3. MANNITOL [Concomitant]
     Active Substance: MANNITOL
     Indication: Mental status changes
     Route: 065
  4. SODIUM CHLORIDE [Concomitant]
     Active Substance: SODIUM CHLORIDE
     Indication: Product used for unknown indication
     Dosage: D10 NORMAL SALINE
     Route: 065
  5. SODIUM CHLORIDE [Suspect]
     Active Substance: SODIUM CHLORIDE
     Indication: Asthma
     Dosage: BOLUSES
     Route: 065
  6. CETIRIZINE [Suspect]
     Active Substance: CETIRIZINE HYDROCHLORIDE
     Indication: Asthma
     Route: 065
  7. HYDROCORTISONE [Concomitant]
     Active Substance: HYDROCORTISONE\HYDROCORTISONE ACETATE
     Indication: Adrenocortical insufficiency acute
     Route: 065

REACTIONS (3)
  - Adrenal insufficiency [Recovered/Resolved]
  - Drug ineffective [Unknown]
  - Encephalopathy [Recovered/Resolved]
